FAERS Safety Report 24641855 (Version 1)
Quarter: 2024Q4

REPORT INFORMATION
  Report Type: Spontaneous
  Country: JP (occurrence: JP)
  Receive Date: 20241120
  Receipt Date: 20241120
  Transmission Date: 20250115
  Serious: Yes (Other)
  Sender: ASTELLAS
  Company Number: JP-ASTELLAS-2024-AER-018215

PATIENT
  Age: 6 Decade
  Sex: Female

DRUGS (7)
  1. PROGRAF [Suspect]
     Active Substance: TACROLIMUS
     Indication: Acute graft versus host disease
     Route: 065
  2. AZACITIDINE [Concomitant]
     Active Substance: AZACITIDINE
     Indication: Acute myeloid leukaemia
     Route: 065
  3. AZACITIDINE [Concomitant]
     Active Substance: AZACITIDINE
     Indication: Acute myeloid leukaemia recurrent
     Route: 065
  4. AZACITIDINE [Concomitant]
     Active Substance: AZACITIDINE
     Route: 065
  5. VENETOCLAX [Concomitant]
     Active Substance: VENETOCLAX
     Indication: Acute myeloid leukaemia
     Route: 065
  6. VENETOCLAX [Concomitant]
     Active Substance: VENETOCLAX
     Indication: Acute myeloid leukaemia recurrent
     Route: 065
  7. BECLOMETHASONE DIPROPIONATE [Concomitant]
     Active Substance: BECLOMETHASONE DIPROPIONATE
     Indication: Acute graft versus host disease
     Route: 065

REACTIONS (4)
  - Acute myeloid leukaemia recurrent [Recovering/Resolving]
  - Graft versus host disease in gastrointestinal tract [Unknown]
  - Cytopenia [Unknown]
  - Malaise [Unknown]
